FAERS Safety Report 7339821-4 (Version None)
Quarter: 2011Q1

REPORT INFORMATION
  Report Type: 
  Country: None (occurrence: None)
  Receive Date: 20110304
  Receipt Date: 20110304
  Transmission Date: 20110831
  Serious: Yes (Other)
  Sender: FDA-Public Use
  Company Number: None

PATIENT
  Age: 65 Year
  Sex: Female
  Weight: 77.1115 kg

DRUGS (2)
  1. CYMBALTA [Suspect]
     Indication: NEURALGIA
     Dosage: 1 DAILY PO
     Route: 048
     Dates: start: 20100102, end: 20110102
  2. CYMBALTA [Suspect]
     Indication: HERPES ZOSTER
     Dosage: 1 DAILY PO
     Route: 048
     Dates: start: 20100102, end: 20110102

REACTIONS (8)
  - SLEEP TALKING [None]
  - SCREAMING [None]
  - FATIGUE [None]
  - SLEEP DISORDER [None]
  - NIGHTMARE [None]
  - FLATULENCE [None]
  - ABDOMINAL DISTENSION [None]
  - WAIST CIRCUMFERENCE INCREASED [None]
